FAERS Safety Report 6556662-6 (Version None)
Quarter: 2010Q1

REPORT INFORMATION
  Report Type: 
  Country: None (occurrence: None)
  Receive Date: 20100128
  Receipt Date: 20100118
  Transmission Date: 20100710
  Serious: Yes (Other)
  Sender: FDA-Public Use
  Company Number: GB-PFIZER INC-2009302368

PATIENT
  Sex: Female

DRUGS (4)
  1. SERTRALINE HYDROCHLORIDE [Suspect]
     Indication: ANXIETY
     Dosage: 50 MG, 1X/DAY
     Route: 048
     Dates: start: 20091113, end: 20091115
  2. OLANZAPINE [Concomitant]
     Indication: ANXIETY
     Dosage: 2.5 MG, UNK
     Route: 048
     Dates: start: 20081201
  3. LORAZEPAM [Concomitant]
     Indication: ANXIETY
     Dosage: 0.5 MG, AS NEEDED
     Route: 048
     Dates: start: 20081201
  4. RAMIPRIL [Concomitant]
     Dosage: 2.5 MG, UNK
     Route: 048

REACTIONS (2)
  - OEDEMA MOUTH [None]
  - SWELLING FACE [None]
